FAERS Safety Report 7424105 (Version 2)
Quarter: 2014Q1

REPORT INFORMATION
  Report Type: Spontaneous
  Country: FR (occurrence: FR)
  Receive Date: 20100617
  Receipt Date: 20140228
  Transmission Date: 20141002
  Serious: Yes (Death, Life-Threatening, Hospitalization, Other)
  Sender: FDA-Public Use
  Company Number: FR-ELI_LILLY_AND_COMPANY-FR201006003002

PATIENT
  Age: 66 Year
  Sex: Male

DRUGS (21)
  1. LASILIX [Concomitant]
     Dosage: 40 MG, DAILY (1/D)
     Route: 048
     Dates: start: 201001
  2. EXFORGE                            /01634301/ [Concomitant]
     Route: 048
     Dates: start: 201001
  3. DIAMICRON [Concomitant]
     Dosage: 60 MG, DAILY (1/D)
     Route: 048
     Dates: start: 201001
  4. TERBUTALINE [Concomitant]
     Dosage: 1 D/F, 3/D
     Dates: start: 201001
  5. ATROVENT [Concomitant]
     Dosage: 1 D/F, 3/D
     Dates: start: 201001
  6. PULMICORT [Concomitant]
     Dosage: UNK, 2/D
     Dates: start: 201001
  7. SERETIDE [Concomitant]
     Dates: start: 201001
  8. SPIRIVA [Concomitant]
     Route: 048
     Dates: start: 201001
  9. PRAXILENE [Concomitant]
     Dosage: 200 MG, 3/D
     Route: 048
     Dates: start: 20100216
  10. PLAVIX [Concomitant]
     Dosage: 75 MG, DAILY (1/D)
     Route: 048
     Dates: start: 20100216
  11. ELISOR [Concomitant]
     Dosage: 20 MG, DAILY (1/D)
     Route: 048
  12. INEXIUM [Concomitant]
     Dosage: 20 MG, EACH EVENING
     Route: 048
  13. STILNOX [Concomitant]
     Dosage: UNK, AS NEEDED
  14. CHAMPIX                            /05703001/ [Concomitant]
     Dosage: 0.5 MG, EACH EVENING
  15. CARBOPLATIN [Concomitant]
     Dosage: 413 MG, UNK
     Dates: start: 20100216
  16. ZOPHREN [Concomitant]
     Dosage: 8 MG, UNK
     Route: 042
     Dates: start: 20100216
  17. SOLUPRED [Concomitant]
     Dosage: 40 MG, UNK
     Dates: start: 20100216, end: 20100221
  18. PRIMPERAN /00041901/ [Concomitant]
     Dosage: 10 MG, 3/D
     Dates: start: 20100216, end: 20100227
  19. VITAMIN B12 [Concomitant]
     Route: 030
     Dates: start: 20100209
  20. SPECIAFOLDINE [Concomitant]
     Dosage: 0.4 MG, DAILY (1/D)
     Dates: start: 20100211, end: 20100227
  21. ALIMTA [Suspect]
     Indication: LUNG ADENOCARCINOMA
     Dosage: 842 MG, UNK
     Route: 042
     Dates: start: 20100216

REACTIONS (11)
  - Bicytopenia [Fatal]
  - Enteritis [Fatal]
  - Bacterial sepsis [Fatal]
  - Renal failure acute [Fatal]
  - Shock [Unknown]
  - Atrial fibrillation [Unknown]
  - Toxic skin eruption [Unknown]
  - General physical health deterioration [Unknown]
  - Lung disorder [Unknown]
  - Aspergillus infection [Unknown]
  - Left ventricular dysfunction [Unknown]
